FAERS Safety Report 20321040 (Version 1)
Quarter: 2022Q1

REPORT INFORMATION
  Report Type: Spontaneous
  Country: US (occurrence: US)
  Receive Date: 20220111
  Receipt Date: 20220111
  Transmission Date: 20220423
  Serious: Yes (Other)
  Sender: FDA-Public Use
  Company Number: US-PFIZER INC-202101864892

PATIENT
  Age: 70 Year
  Sex: Female
  Weight: 108.86 kg

DRUGS (2)
  1. PREMARIN [Suspect]
     Active Substance: ESTROGENS, CONJUGATED
     Indication: Vulvovaginal dryness
     Dosage: 0.625 MG, 2X/WEEK
     Route: 067
  2. CORTISONE [Suspect]
     Active Substance: CORTISONE
     Indication: Arthritis
     Dosage: UNK, (EVERY THREE MONTHS IF SHE NEEDS)
     Dates: start: 2021

REACTIONS (4)
  - Arthralgia [Recovered/Resolved]
  - Pain in extremity [Recovered/Resolved]
  - Insomnia [Recovered/Resolved]
  - Walking aid user [Recovered/Resolved]

NARRATIVE: CASE EVENT DATE: 20211201
